FAERS Safety Report 16953303 (Version 1)
Quarter: 2019Q4

REPORT INFORMATION
  Report Type: Spontaneous
  Country: DE (occurrence: DE)
  Receive Date: 20191023
  Receipt Date: 20191023
  Transmission Date: 20200122
  Serious: Yes (Life-Threatening, Hospitalization, Other)
  Sender: FDA-Public Use
  Company Number: NVSC2018DE000445

PATIENT
  Age: 55 Year
  Sex: Male
  Weight: 72 kg

DRUGS (17)
  1. FRAGMIN [Concomitant]
     Active Substance: DALTEPARIN SODIUM
     Indication: ANTICOAGULATION DRUG LEVEL
     Route: 065
  2. CLEXANE [Concomitant]
     Active Substance: ENOXAPARIN SODIUM
     Indication: PRODUCT USED FOR UNKNOWN INDICATION
     Route: 065
  3. ONDANSETRAN [Concomitant]
     Active Substance: ONDANSETRON HYDROCHLORIDE
     Indication: PRODUCT USED FOR UNKNOWN INDICATION
     Route: 065
  4. LAVANID [Concomitant]
     Indication: PRODUCT USED FOR UNKNOWN INDICATION
     Route: 065
  5. MOVICOL [Concomitant]
     Active Substance: POLYETHYLENE GLYCOL 3350\POTASSIUM CHLORIDE\SODIUM BICARBONATE\SODIUM CHLORIDE
     Indication: PRODUCT USED FOR UNKNOWN INDICATION
     Route: 065
  6. CLINDAMYCIN. [Concomitant]
     Active Substance: CLINDAMYCIN
     Indication: PRODUCT USED FOR UNKNOWN INDICATION
     Route: 065
  7. VALSARTAN 1 A PHARMA [Suspect]
     Active Substance: VALSARTAN
     Indication: HYPERTENSION
     Route: 065
  8. OMEPRAZOLE. [Concomitant]
     Active Substance: OMEPRAZOLE
     Indication: GASTROOESOPHAGEAL REFLUX DISEASE
     Route: 065
  9. IBUPROFEN. [Concomitant]
     Active Substance: IBUPROFEN
     Indication: PRODUCT USED FOR UNKNOWN INDICATION
     Route: 065
  10. L-THYROXIN [Concomitant]
     Active Substance: LEVOTHYROXINE SODIUM
     Indication: HYPOTHYROIDISM
     Route: 065
  11. TOCTINO [Concomitant]
     Active Substance: ALITRETINOIN
     Indication: PRODUCT USED FOR UNKNOWN INDICATION
     Route: 065
  12. OMEPRAZOLE. [Concomitant]
     Active Substance: OMEPRAZOLE
     Indication: PRODUCT USED FOR UNKNOWN INDICATION
     Route: 065
  13. L-THYROXIN 1A PHARMA [Concomitant]
     Indication: PRODUCT USED FOR UNKNOWN INDICATION
     Route: 065
  14. IBUPROFEN. [Concomitant]
     Active Substance: IBUPROFEN
     Indication: PRODUCT USED FOR UNKNOWN INDICATION
     Route: 065
  15. TINOLOL [Concomitant]
     Indication: PRODUCT USED FOR UNKNOWN INDICATION
     Route: 065
  16. CIPROFLOXACIN. [Concomitant]
     Active Substance: CIPROFLOXACIN
     Indication: PRODUCT USED FOR UNKNOWN INDICATION
     Route: 065
  17. LOPERAMIDE [Concomitant]
     Active Substance: LOPERAMIDE
     Indication: PRODUCT USED FOR UNKNOWN INDICATION
     Route: 065

REACTIONS (89)
  - Diverticulitis [Unknown]
  - Constipation [Unknown]
  - Neutropenia [Unknown]
  - Glycosylated haemoglobin increased [Unknown]
  - Mean cell haemoglobin concentration increased [Unknown]
  - Abdominal hernia [Unknown]
  - Lymphoedema [Unknown]
  - Body temperature abnormal [Unknown]
  - Haematocrit decreased [Unknown]
  - Metastases to lung [Unknown]
  - Dysphagia [Unknown]
  - Flank pain [Unknown]
  - Activated partial thromboplastin time shortened [Unknown]
  - Hepatic steatosis [Unknown]
  - Acne [Unknown]
  - Blood pressure abnormal [Unknown]
  - Dysphonia [Unknown]
  - Post procedural complication [Recovering/Resolving]
  - Swelling [Unknown]
  - Insomnia [Unknown]
  - Fistula [Unknown]
  - Vocal cord paresis [Unknown]
  - Pyrexia [Unknown]
  - Nausea [Unknown]
  - Enterococcal infection [Unknown]
  - Paraesthesia [Unknown]
  - Lymphoedema [Not Recovered/Not Resolved]
  - Gamma-glutamyltransferase increased [Unknown]
  - Ischaemic cerebral infarction [Recovered/Resolved]
  - Headache [Unknown]
  - Diarrhoea infectious [Unknown]
  - Visual impairment [Unknown]
  - Abdominal pain [Unknown]
  - Mucosal dryness [Unknown]
  - Red blood cell count decreased [Unknown]
  - Haemoglobin decreased [Unknown]
  - Glaucoma [Unknown]
  - Blood cholesterol increased [Unknown]
  - Mucosal inflammation [Unknown]
  - Lymphadenopathy [Unknown]
  - Pain [Unknown]
  - Oropharyngeal pain [Unknown]
  - Platelet count decreased [Unknown]
  - Hypopharyngeal cancer recurrent [Not Recovered/Not Resolved]
  - Metastases to lymph nodes [Unknown]
  - Chest pain [Unknown]
  - Abdominal pain lower [Unknown]
  - Diverticulitis [Unknown]
  - General physical health deterioration [Unknown]
  - Faeces soft [Recovered/Resolved]
  - Malnutrition [Unknown]
  - Osteoarthritis [Unknown]
  - Blood glucose increased [Unknown]
  - Blood thyroid stimulating hormone decreased [Unknown]
  - Low density lipoprotein increased [Unknown]
  - White blood cell count decreased [Unknown]
  - Fibrosis [Unknown]
  - Skin hyperpigmentation [Unknown]
  - Weight decreased [Unknown]
  - Dysgeusia [Unknown]
  - Dysphagia [Unknown]
  - Pulse abnormal [Unknown]
  - Fatigue [Unknown]
  - Disease progression [Unknown]
  - Paresis [Unknown]
  - Metastases to central nervous system [Unknown]
  - Dehydration [Unknown]
  - Weight decreased [Unknown]
  - C-reactive protein increased [Unknown]
  - Emphysema [Unknown]
  - Intervertebral disc degeneration [Unknown]
  - C-reactive protein increased [Unknown]
  - Tri-iodothyronine decreased [Unknown]
  - Infection [Unknown]
  - Abnormal faeces [Unknown]
  - General physical health deterioration [Unknown]
  - Dry mouth [Unknown]
  - Hypoacusis [Unknown]
  - Skin disorder [Unknown]
  - Glomerular filtration rate decreased [Unknown]
  - Metastases to soft tissue [Not Recovered/Not Resolved]
  - Squamous cell carcinoma of head and neck [Unknown]
  - Gastroenteritis [Unknown]
  - C-reactive protein increased [Unknown]
  - Hypokalaemia [Recovered/Resolved]
  - Musculoskeletal pain [Unknown]
  - Oedema [Unknown]
  - Skin abrasion [Unknown]
  - Blood creatinine decreased [Unknown]

NARRATIVE: CASE EVENT DATE: 201204
